FAERS Safety Report 23774846 (Version 2)
Quarter: 2024Q2

REPORT INFORMATION
  Report Type: Spontaneous
  Country: IT (occurrence: IT)
  Receive Date: 20240423
  Receipt Date: 20240511
  Transmission Date: 20240716
  Serious: Yes (Death)
  Sender: FDA-Public Use
  Company Number: IT-ABBVIE-5726931

PATIENT
  Age: 61 Year
  Sex: Female
  Weight: 74 kg

DRUGS (9)
  1. EPCORITAMAB [Suspect]
     Active Substance: EPCORITAMAB
     Indication: Product used for unknown indication
     Dosage: 0.16 MG, FREQUENCY TEXT: 1/WEEK
     Route: 058
     Dates: start: 20240412
  2. DEXAMETHASONE ACETATE [Concomitant]
     Active Substance: DEXAMETHASONE ACETATE
     Indication: Premedication
     Dosage: 16 MILLIGRAM, QD
     Dates: start: 20240412
  3. LEVETIRACETAM [Concomitant]
     Active Substance: LEVETIRACETAM
     Indication: Epilepsy
     Dosage: FREQUENCY TEXT: BID
     Dates: start: 2020
  4. BRIV [Concomitant]
     Indication: Epilepsy
     Dosage: FREQUENCY TEXT: BID
     Dates: start: 2020
  5. ALLOPURINOL SODIUM [Concomitant]
     Active Substance: ALLOPURINOL SODIUM
     Indication: Prophylaxis
     Dosage: DOSE: 300 MILLIGRAM FREQUENCY TEXT: DAILY
     Dates: start: 20240405
  6. LAMOTRIGINE [Concomitant]
     Active Substance: LAMOTRIGINE
     Indication: Epilepsy
     Dosage: FREQUENCY TEXT: BID
     Dates: start: 2020
  7. PHENYTOIN SODIUM [Concomitant]
     Active Substance: PHENYTOIN SODIUM
     Indication: Epilepsy
     Dosage: FREQUENCY TEXT: BID
     Dates: start: 2020
  8. LACOSAMIDE AB [Concomitant]
     Indication: Epilepsy
     Dosage: DOSE: 100 MILLIGRAM FREQUENCY TEXT: DAILY
     Dates: start: 2020
  9. PIPERACILLIN SODIUM\TAZOBACTAM SODIUM [Concomitant]
     Active Substance: PIPERACILLIN SODIUM\TAZOBACTAM SODIUM
     Indication: Pyrexia
     Dosage: DOSE: 4,5 GR FREQUENCY TEXT: THREE TIMES DAY FREQUENCY: 5 GR FREQUENCY TEXT: THREE TIMES DAY
     Dates: start: 20240412

REACTIONS (1)
  - Disease progression [Fatal]
